FAERS Safety Report 16438164 (Version 1)
Quarter: 2019Q2

REPORT INFORMATION
  Report Type: Spontaneous
  Country: FR (occurrence: FR)
  Receive Date: 20190617
  Receipt Date: 20190617
  Transmission Date: 20190711
  Serious: Yes (Other)
  Sender: FDA-Public Use
  Company Number: FR-CELLTRION INC.-2019FR021890

PATIENT

DRUGS (1)
  1. REMSIMA [Suspect]
     Active Substance: INFLIXIMAB
     Indication: HIDRADENITIS
     Dosage: 5MG/KG RENEWED AT WEEKS 2 AND 6, THEN EVERY 8 WEEKS
     Route: 042

REACTIONS (2)
  - Off label use [Unknown]
  - Melanocytic naevus [Recovering/Resolving]
